FAERS Safety Report 8496988-2 (Version None)
Quarter: 2012Q3

REPORT INFORMATION
  Report Type: 
  Country: None (occurrence: None)
  Receive Date: 20120709
  Receipt Date: 20120531
  Transmission Date: 20120928
  Serious: No
  Sender: FDA-Public Use
  Company Number: US-AMGEN-USASP2012034649

PATIENT
  Age: 68 Year
  Sex: Female

DRUGS (3)
  1. TREXALL [Concomitant]
     Dosage: UNKNOWN MILLIGRAMS SC WEEKLY
     Route: 058
     Dates: start: 20040101
  2. ENBREL [Suspect]
     Indication: PSORIASIS
  3. ENBREL [Suspect]
     Indication: RHEUMATOID ARTHRITIS
     Dosage: 50 MG, QWK
     Dates: start: 20040101

REACTIONS (1)
  - INJECTION SITE PAIN [None]
